FAERS Safety Report 8189157-7 (Version None)
Quarter: 2012Q1

REPORT INFORMATION
  Report Type: 
  Country: None (occurrence: None)
  Receive Date: 20120306
  Receipt Date: 20120306
  Transmission Date: 20120608
  Serious: No
  Sender: FDA-Public Use
  Company Number: None

PATIENT
  Age: 74 Year
  Sex: Female
  Weight: 68.0396 kg

DRUGS (1)
  1. HYDROCHLOROTHIAZIDE 25MG TAB [Suspect]
     Indication: HYPERTENSION
     Dosage: AFTER A FEW WEEKS

REACTIONS (7)
  - DIZZINESS [None]
  - APHONIA [None]
  - VISION BLURRED [None]
  - CHEST DISCOMFORT [None]
  - COUGH [None]
  - VISUAL IMPAIRMENT [None]
  - DISORIENTATION [None]
